FAERS Safety Report 7000267-X (Version None)
Quarter: 2010Q3

REPORT INFORMATION
  Report Type: 
  Country: None (occurrence: None)
  Receive Date: 20100920
  Receipt Date: 20100712
  Transmission Date: 20110219
  Serious: Yes (Hospitalization)
  Sender: FDA-Public Use
  Company Number: US-ASTRAZENECA-2010SE29016

PATIENT
  Age: 60 Year
  Sex: Female

DRUGS (7)
  1. SEROQUEL [Suspect]
     Indication: SLEEP DISORDER
     Dosage: HALF TO ONE TABLET EVERY DAY FOR ANXIETY AND 3 TO 4 TABLETS AT BEDTIME FOR SLEEP
     Route: 048
  2. SEROQUEL [Suspect]
     Indication: ANXIETY
     Dosage: HALF TO ONE TABLET EVERY DAY FOR ANXIETY AND 3 TO 4 TABLETS AT BEDTIME FOR SLEEP
     Route: 048
  3. SEROQUEL [Suspect]
     Indication: BIPOLAR DISORDER
     Dosage: HALF TO ONE TABLET EVERY DAY FOR ANXIETY AND 3 TO 4 TABLETS AT BEDTIME FOR SLEEP
     Route: 048
  4. SEROQUEL [Suspect]
     Route: 048
  5. SEROQUEL [Suspect]
     Route: 048
  6. SEROQUEL [Suspect]
     Route: 048
  7. LITHIUM [Concomitant]

REACTIONS (5)
  - DEPRESSION [None]
  - HALLUCINATION, AUDITORY [None]
  - INCORRECT DOSE ADMINISTERED [None]
  - INTENTIONAL DRUG MISUSE [None]
  - SUICIDAL IDEATION [None]
